FAERS Safety Report 6636277-1 (Version None)
Quarter: 2010Q1

REPORT INFORMATION
  Report Type: 
  Country: None (occurrence: None)
  Receive Date: 20100316
  Receipt Date: 20100309
  Transmission Date: 20100710
  Serious: Yes (Hospitalization)
  Sender: FDA-Public Use
  Company Number: CA-GENZYME-CERZ-1001187

PATIENT

DRUGS (7)
  1. CEREZYME [Suspect]
     Indication: GAUCHER'S DISEASE
     Dosage: 33 U/KG, Q2W
     Route: 042
     Dates: start: 19970401
  2. CEREZYME [Suspect]
     Dosage: 2600 U, Q4W
     Dates: start: 20090709
  3. METHADONE HYDROCHLORIDE [Concomitant]
     Indication: PAIN
     Dosage: 90 MG, TID
  4. NABILONE [Concomitant]
     Indication: ANTIEMETIC SUPPORTIVE CARE
     Dosage: 1 MG, BID
  5. SPIRONOLACTONE [Concomitant]
     Indication: DIURETIC THERAPY
     Dosage: 50 MG, QD
  6. LOTENSIN [Concomitant]
     Indication: CARDIOVASCULAR DISORDER
     Dosage: 10 MG, QD
  7. CALCIUM [Concomitant]
     Indication: SUPPLEMENTATION THERAPY
     Dosage: 1000 MG, UNK

REACTIONS (5)
  - FEMUR FRACTURE [None]
  - HEADACHE [None]
  - INFUSION RELATED REACTION [None]
  - OEDEMA [None]
  - PAIN [None]
